FAERS Safety Report 4911068-8 (Version None)
Quarter: 2006Q1

REPORT INFORMATION
  Report Type: 
  Country: None (occurrence: None)
  Receive Date: 20060214
  Receipt Date: 20060125
  Transmission Date: 20060701
  Serious: Yes (Hospitalization)
  Sender: FDA-Public Use
  Company Number: US-BRISTOL-MYERS SQUIBB COMPANY-13260187

PATIENT
  Age: 67 Year
  Sex: Female

DRUGS (16)
  1. CETUXIMAB [Suspect]
     Indication: NON-SMALL CELL LUNG CANCER
     Dosage: FIRST COURSE.
     Route: 042
     Dates: start: 20060118, end: 20060118
  2. CARBOPLATIN [Suspect]
     Indication: NON-SMALL CELL LUNG CANCER
     Dosage: FIRST COURSE.
     Route: 042
     Dates: start: 20060118, end: 20060118
  3. TAXOTERE [Suspect]
     Indication: NON-SMALL CELL LUNG CANCER
     Dosage: FIRST COURSE.
     Route: 042
     Dates: start: 20060118, end: 20060118
  4. DECADRON SRC [Concomitant]
     Route: 042
     Dates: start: 20060118, end: 20060118
  5. KYTRIL [Concomitant]
     Route: 042
     Dates: start: 20060118, end: 20060118
  6. DIPHENHYDRAMINE HCL [Concomitant]
     Route: 042
     Dates: start: 20060118, end: 20060118
  7. TAGAMET [Concomitant]
     Route: 042
     Dates: start: 20060118, end: 20060118
  8. MEGACE [Concomitant]
  9. VICOPROFEN [Concomitant]
  10. VICODIN [Concomitant]
  11. COMPAZINE [Concomitant]
  12. XANAX [Concomitant]
  13. SINEMET [Concomitant]
  14. LEXAPRO [Concomitant]
     Dosage: TAKEN AT BEDTIME.
  15. PHENERGAN [Concomitant]
  16. LISINOPRIL [Concomitant]

REACTIONS (13)
  - ASTHENIA [None]
  - BLOOD MAGNESIUM DECREASED [None]
  - BLOOD PRESSURE SYSTOLIC DECREASED [None]
  - BLOOD SODIUM DECREASED [None]
  - CONSTIPATION [None]
  - DEHYDRATION [None]
  - DIARRHOEA [None]
  - FATIGUE [None]
  - GLOMERULAR FILTRATION RATE DECREASED [None]
  - NAUSEA [None]
  - ORAL INTAKE REDUCED [None]
  - PCO2 DECREASED [None]
  - VOMITING [None]
